FAERS Safety Report 24385732 (Version 1)
Quarter: 2024Q4

REPORT INFORMATION
  Report Type: Report from Study
  Country: US (occurrence: US)
  Receive Date: 20241001
  Receipt Date: 20241001
  Transmission Date: 20250115
  Serious: Yes (Disabling)
  Sender: ABBVIE
  Company Number: US-ABBVIE-5939662

PATIENT
  Sex: Female

DRUGS (1)
  1. HUMIRA [Suspect]
     Active Substance: ADALIMUMAB
     Indication: Product used for unknown indication
     Route: 058
     Dates: start: 20210101

REACTIONS (3)
  - Visual impairment [Unknown]
  - Noninfective chorioretinitis [Unknown]
  - Uveitis [Unknown]
